FAERS Safety Report 11568967 (Version 1)
Quarter: 2015Q3

REPORT INFORMATION
  Report Type: Spontaneous
  Country: US (occurrence: None)
  Receive Date: 20150928
  Receipt Date: 20150928
  Transmission Date: 20151125
  Serious: Yes (Disabling)
  Sender: FDA-Public Use
  Company Number: None

PATIENT
  Age: 61 Year
  Sex: Female

DRUGS (3)
  1. PROLIA [Suspect]
     Active Substance: DENOSUMAB
     Indication: MALAISE
     Dosage: EVERY 6 MONTHS
     Route: 058
     Dates: start: 20150109
  2. PROLIA [Suspect]
     Active Substance: DENOSUMAB
     Indication: FATIGUE
     Dosage: EVERY 6 MONTHS
     Route: 058
     Dates: start: 20150109
  3. PROLIA [Suspect]
     Active Substance: DENOSUMAB
     Indication: CHEST PAIN
     Dosage: EVERY 6 MONTHS
     Route: 058
     Dates: start: 20150109

REACTIONS (3)
  - Aphasia [None]
  - Intra-cerebral aneurysm operation [None]
  - Paralysis [None]

NARRATIVE: CASE EVENT DATE: 20150531
